FAERS Safety Report 18204495 (Version 4)
Quarter: 2020Q4

REPORT INFORMATION
  Report Type: Report from Study
  Country: US (occurrence: US)
  Receive Date: 20200828
  Receipt Date: 20201118
  Transmission Date: 20210113
  Serious: No
  Sender: FDA-Public Use
  Company Number: NVSC2020US215829

PATIENT
  Age: 71 Year
  Sex: Female

DRUGS (2)
  1. GLATOPA [Suspect]
     Active Substance: GLATIRAMER ACETATE
     Dosage: 40 MG, UNKNOWN
     Route: 058
  2. GLATOPA [Suspect]
     Active Substance: GLATIRAMER ACETATE
     Indication: MULTIPLE SCLEROSIS RELAPSE
     Dosage: 40 MG, QW3
     Route: 058

REACTIONS (9)
  - Injection site mass [Unknown]
  - Wrong technique in product usage process [Unknown]
  - Injection site pruritus [Unknown]
  - Device defective [Unknown]
  - Pain [Unknown]
  - Injection site erythema [Unknown]
  - Accidental exposure to product [Unknown]
  - Allergic reaction to excipient [Unknown]
  - Product dose omission issue [Unknown]

NARRATIVE: CASE EVENT DATE: 202007
